FAERS Safety Report 5248332-1 (Version None)
Quarter: 2007Q1

REPORT INFORMATION
  Report Type: 
  Country: None (occurrence: None)
  Receive Date: 20070227
  Receipt Date: 20070222
  Transmission Date: 20070707
  Serious: Yes (Hospitalization)
  Sender: FDA-Public Use
  Company Number: SA-BOEHRINGER INGELHEIM GMBH, GERMANY-2007-DE-01094GD

PATIENT
  Age: 83 Year
  Sex: Male

DRUGS (5)
  1. AGGRENOX [Suspect]
     Indication: TRANSIENT ISCHAEMIC ATTACK
     Dosage: ACETYLSALICYLIC ACID 25 MG / DIPYRIDAMOLE 200 MG
     Route: 048
  2. RANITIDINE [Suspect]
  3. ENALAPRIL MALEATE [Suspect]
  4. DILTIAZEM [Suspect]
  5. ISOSORBIDE DINITRATE [Concomitant]

REACTIONS (6)
  - ASTHENIA [None]
  - NAUSEA [None]
  - NEPHRITIS INTERSTITIAL [None]
  - OEDEMA PERIPHERAL [None]
  - RENAL FAILURE ACUTE [None]
  - VOMITING [None]
